FAERS Safety Report 11939602 (Version 1)
Quarter: 2016Q1

REPORT INFORMATION
  Report Type: Spontaneous
  Country: SK (occurrence: SK)
  Receive Date: 20160122
  Receipt Date: 20160122
  Transmission Date: 20160526
  Serious: Yes (Death, Hospitalization)
  Sender: FDA-Public Use
  Company Number: SK-HORIZON-BUP-0013-2016

PATIENT
  Age: 2 Year
  Sex: Male
  Weight: 8.6 kg

DRUGS (1)
  1. AMMONAPS [Suspect]
     Active Substance: SODIUM PHENYLBUTYRATE
     Indication: ORNITHINE TRANSCARBAMOYLASE DEFICIENCY
     Dosage: 2.25 MG QD

REACTIONS (5)
  - Brain oedema [Fatal]
  - Seizure [Unknown]
  - Dehydration [Unknown]
  - Vomiting [Unknown]
  - Hyperammonaemia [Recovered/Resolved]

NARRATIVE: CASE EVENT DATE: 201207
